FAERS Safety Report 14675231 (Version 1)
Quarter: 2018Q1

REPORT INFORMATION
  Report Type: Spontaneous
  Country: US (occurrence: US)
  Receive Date: 20180323
  Receipt Date: 20180323
  Transmission Date: 20180509
  Serious: Yes (Hospitalization)
  Sender: FDA-Public Use
  Company Number: US-LPDUSPRD-20180342

PATIENT
  Age: 83 Year
  Sex: Male

DRUGS (1)
  1. PHENYTOIN SODIUM INJECTION (40042-009-02) [Suspect]
     Active Substance: PHENYTOIN SODIUM
     Dosage: UNKNOWN
     Route: 065

REACTIONS (3)
  - Drug hypersensitivity [Unknown]
  - Upper gastrointestinal haemorrhage [Unknown]
  - Oesophageal ulcer [Unknown]
